FAERS Safety Report 18605435 (Version 1)
Quarter: 2020Q4

REPORT INFORMATION
  Report Type: Spontaneous
  Country: FR (occurrence: FR)
  Receive Date: 20201211
  Receipt Date: 20201211
  Transmission Date: 20210114
  Serious: Yes (Other)
  Sender: FDA-Public Use
  Company Number: NVSC2020FR323575

PATIENT
  Age: 72 Year
  Sex: Male
  Weight: 100 kg

DRUGS (20)
  1. TRULICITY [Suspect]
     Active Substance: DULAGLUTIDE
     Indication: NEW ONSET DIABETES AFTER TRANSPLANTATION
     Dosage: 1.5 MG
     Route: 058
     Dates: start: 20200729
  2. COAPROVEL [Interacting]
     Active Substance: HYDROCHLOROTHIAZIDE\IRBESARTAN
     Indication: HYPERTENSION
     Dosage: 1 DF,QD
     Route: 048
  3. ADVAGRAF [Suspect]
     Active Substance: TACROLIMUS
     Indication: ORGAN TRANSPLANT
     Dosage: 3 MG,QD (3 MG LE MATIN)
     Route: 048
     Dates: start: 2009
  4. CORTANCYL [Concomitant]
     Active Substance: PREDNISONE
     Indication: ORGAN TRANSPLANT
     Dosage: 7.5 MG, QD
     Route: 048
  5. CORDARONE [Concomitant]
     Active Substance: AMIODARONE HYDROCHLORIDE
     Indication: ATRIAL FIBRILLATION
     Dosage: 1000 MG
     Route: 048
     Dates: start: 20180222
  6. ZYLORIC [Concomitant]
     Active Substance: ALLOPURINOL
     Indication: PRODUCT USED FOR UNKNOWN INDICATION
     Dosage: 300 MG, QD
     Route: 048
  7. CELLCEPT [Suspect]
     Active Substance: MYCOPHENOLATE MOFETIL\MYCOPHENOLATE MOFETIL HYDROCHLORIDE
     Indication: ORGAN TRANSPLANT
     Dosage: 2500 MG, QD
     Route: 048
     Dates: start: 2009
  8. XARELTO [Concomitant]
     Active Substance: RIVAROXABAN
     Indication: ATRIAL FIBRILLATION
     Dosage: 15 MG, QD
     Route: 048
     Dates: start: 20180208
  9. STILNOX [Concomitant]
     Active Substance: ZOLPIDEM TARTRATE
     Indication: PRODUCT USED FOR UNKNOWN INDICATION
     Dosage: 20 MG, QD
     Route: 048
     Dates: start: 201710
  10. METFORMIN [Suspect]
     Active Substance: METFORMIN HYDROCHLORIDE
     Indication: NEW ONSET DIABETES AFTER TRANSPLANTATION
     Dosage: 1700 MG, QD
     Route: 048
     Dates: start: 20170619
  11. MAGNE B6 [Suspect]
     Active Substance: MAGNESIUM\PYRIDOXINE
     Indication: HYPOMAGNESAEMIA
     Dosage: 4 DF, QD
     Route: 048
     Dates: start: 20200604
  12. OMEPRAZOLE. [Concomitant]
     Active Substance: OMEPRAZOLE
     Indication: PRODUCT USED FOR UNKNOWN INDICATION
     Dosage: 20 MG, QD
     Route: 048
  13. LEVOTHYROX [Concomitant]
     Active Substance: LEVOTHYROXINE
     Indication: HYPOTHYROIDISM
     Dosage: 225 UG, QD
     Route: 048
  14. PRAVASTATINE [Concomitant]
     Active Substance: PRAVASTATIN
     Indication: DYSLIPIDAEMIA
     Dosage: 20 MG, QD
     Route: 048
  15. TETRALYSAL [Concomitant]
     Indication: DERMATITIS ACNEIFORM
     Dosage: 1 DF, QD
     Route: 048
     Dates: start: 201205
  16. UVEDOSE [Concomitant]
     Active Substance: CHOLECALCIFEROL
     Indication: VITAMIN D DEFICIENCY
     Dosage: 1 DF
     Route: 048
     Dates: start: 20180222
  17. LASILIX [Interacting]
     Active Substance: FUROSEMIDE
     Indication: OEDEMA PERIPHERAL
     Dosage: 40 MG, QD
     Route: 048
     Dates: start: 20200604
  18. XATRAL [Concomitant]
     Active Substance: ALFUZOSIN
     Indication: BENIGN PROSTATIC HYPERPLASIA
     Dosage: 10 MG, QD
     Route: 048
     Dates: start: 201602
  19. PERMIXON [Concomitant]
     Active Substance: HERBALS\SAW PALMETTO
     Indication: BENIGN PROSTATIC HYPERPLASIA
     Dosage: 2 DF, QD
     Route: 048
     Dates: start: 201602
  20. CERIS [Concomitant]
     Active Substance: TROSPIUM CHLORIDE
     Indication: BENIGN PROSTATIC HYPERPLASIA
     Dosage: 2 DF, QD
     Route: 048

REACTIONS (3)
  - Weight decreased [Recovered/Resolved]
  - Diarrhoea [Recovered/Resolved]
  - Acute kidney injury [Recovered/Resolved]

NARRATIVE: CASE EVENT DATE: 202008
